FAERS Safety Report 24956123 (Version 3)
Quarter: 2025Q1

REPORT INFORMATION
  Report Type: Spontaneous
  Country: US (occurrence: US)
  Receive Date: 20250211
  Receipt Date: 20250314
  Transmission Date: 20250408
  Serious: No
  Sender: PFIZER
  Company Number: US-PFIZER INC-202500024989

PATIENT
  Age: 10 Year
  Sex: Female

DRUGS (3)
  1. GENOTROPIN [Suspect]
     Active Substance: SOMATROPIN
  2. GENOTROPIN [Suspect]
     Active Substance: SOMATROPIN
     Dosage: 1.6 MG, ALTERNATE DAY [ALTERNATING 1.6MG + 1.8MG 6 DAYS PER WEEK]
  3. GENOTROPIN [Suspect]
     Active Substance: SOMATROPIN
     Dosage: 1.8 MG, ALTERNATE DAY [ALTERNATING 1.6MG + 1.8MG 6 DAYS PER WEEK]

REACTIONS (3)
  - Device breakage [Unknown]
  - Device mechanical issue [Unknown]
  - Drug dose omission by device [Unknown]
